FAERS Safety Report 5483448-6 (Version None)
Quarter: 2007Q4

REPORT INFORMATION
  Report Type: 
  Country: None (occurrence: None)
  Receive Date: 20071009
  Receipt Date: 20070921
  Transmission Date: 20080405
  Serious: Yes (Hospitalization)
  Sender: FDA-Public Use
  Company Number: TRP_00987_2007

PATIENT
  Sex: Female
  Weight: 99.3377 kg

DRUGS (27)
  1. RIBASPHERE [Suspect]
     Indication: DRUG USE FOR UNKNOWN INDICATION
     Dosage: (1200 MG QD ORAL)
     Route: 048
     Dates: start: 20070611, end: 20070803
  2. INFERGEN [Suspect]
     Indication: DRUG USE FOR UNKNOWN INDICATION
     Dosage: (15 UG QD SUBCUTANEOUS)
     Route: 058
     Dates: start: 20070611, end: 20070803
  3. RIBASPHERE [Suspect]
     Indication: DRUG USE FOR UNKNOWN INDICATION
     Dosage: (DF; ORAL)
     Route: 048
     Dates: start: 20070809
  4. INFERGEN [Suspect]
     Indication: DRUG USE FOR UNKNOWN INDICATION
     Dosage: (DF; SUBCUTANEOUS)
     Route: 058
     Dates: start: 20070809
  5. METOPROLOL [Concomitant]
  6. TOPAMAX [Concomitant]
  7. SIMVASTATIN [Concomitant]
  8. POTASSIUM CHLORIDE [Concomitant]
  9. MAXALT [Concomitant]
  10. MORPHINE [Concomitant]
  11. PROMETHAZINE [Concomitant]
  12. XANAX [Concomitant]
  13. FLEXERIL [Concomitant]
  14. LASIX [Concomitant]
  15. CLARITIN [Concomitant]
  16. EFFEXOR [Concomitant]
  17. ALBUTEROL [Concomitant]
  18. ATROVENT [Concomitant]
  19. TRAZODONE HCL [Concomitant]
  20. AMBIEN [Concomitant]
  21. PROCRIT [Concomitant]
  22. LEVOFLOXACIN [Concomitant]
  23. DEXTROSE INFUSION FLUID 5% [Concomitant]
  24. VITAMIN CAP [Concomitant]
  25. PANTOPRAZOLE SODIUM [Concomitant]
  26. TORADOL [Concomitant]
  27. PERCOCET [Concomitant]

REACTIONS (13)
  - ABDOMINAL PAIN UPPER [None]
  - BLOOD GLUCOSE INCREASED [None]
  - BLOOD POTASSIUM DECREASED [None]
  - CHOLECYSTITIS [None]
  - CHOLELITHIASIS [None]
  - DRUG SCREEN POSITIVE [None]
  - GLUCOSE URINE PRESENT [None]
  - HAEMATOCRIT DECREASED [None]
  - HAEMOGLOBIN DECREASED [None]
  - PROTEIN URINE PRESENT [None]
  - RED BLOOD CELL COUNT DECREASED [None]
  - URINE ANALYSIS ABNORMAL [None]
  - WHITE BLOOD CELLS URINE POSITIVE [None]
